FAERS Safety Report 9180516 (Version 1)
Quarter: 2013Q1

REPORT INFORMATION
  Report Type: Spontaneous
  Country: US (occurrence: None)
  Receive Date: 20130320
  Receipt Date: 20130320
  Transmission Date: 20140127
  Serious: Yes (Other)
  Sender: FDA-Public Use
  Company Number: E2B_00000641

PATIENT
  Age: 67 Year
  Sex: Female
  Weight: 59.88 kg

DRUGS (1)
  1. LISINOPRIL TABLET USP 5 MG (LISINOPRIL TABLETS USP 5MG) (LISINOPRIL) [Suspect]
     Indication: HYPERTENSION
     Dosage: 7.5MG (2.5 MG IN AM/ 5MG IN PM) (2 IN 1 D), PER ORAL
     Route: 048
     Dates: start: 200710

REACTIONS (2)
  - Chest discomfort [None]
  - Pulmonary hypertension [None]
